FAERS Safety Report 4549335-2 (Version None)
Quarter: 2004Q4

REPORT INFORMATION
  Report Type: 
  Country: None (occurrence: None)
  Receive Date: 20041230
  Receipt Date: 20040623
  Transmission Date: 20050328
  Serious: Yes (Other)
  Sender: FDA-Public Use
  Company Number: 04-06-0916

PATIENT
  Age: 67 Year
  Sex: Male
  Weight: 63.5036 kg

DRUGS (5)
  1. CLOZAPINE [Suspect]
     Indication: BIPOLAR DISORDER
     Dosage: 200MG BID ORAL
     Route: 048
     Dates: start: 20040519, end: 20040619
  2. CLOZAPINE [Suspect]
     Indication: SCHIZOAFFECTIVE DISORDER
     Dosage: 200MG BID ORAL
     Route: 048
     Dates: start: 20040519, end: 20040619
  3. DEPAKOTE [Concomitant]
  4. CLONAZEPAM [Concomitant]
  5. SEIZURE DISORDER [Concomitant]

REACTIONS (1)
  - AGRANULOCYTOSIS [None]
